FAERS Safety Report 11193425 (Version 1)
Quarter: 2015Q2

REPORT INFORMATION
  Report Type: Spontaneous
  Country: CN (occurrence: CN)
  Receive Date: 20150616
  Receipt Date: 20150616
  Transmission Date: 20150821
  Serious: Yes (Death)
  Sender: FDA-Public Use
  Company Number: CN-MYLANLABS-2015M1019388

PATIENT

DRUGS (16)
  1. FENTANYL. [Interacting]
     Active Substance: FENTANYL
     Indication: INDUCTION OF ANAESTHESIA
     Dosage: 100 MICROG IN DIVIDED DOSES
     Route: 065
  2. MIDAZOLAM [Concomitant]
     Active Substance: MIDAZOLAM\MIDAZOLAM HYDROCHLORIDE
     Indication: INDUCTION OF ANAESTHESIA
     Dosage: 2MG
     Route: 065
  3. SUCCINYLCHOLINE CHLORIDE. [Concomitant]
     Active Substance: SUCCINYLCHOLINE CHLORIDE
     Indication: INDUCTION OF ANAESTHESIA
     Dosage: 100 MG
     Route: 065
  4. ANESOXYN [Concomitant]
     Indication: MAINTENANCE OF ANAESTHESIA
     Dosage: 60 - 65% IN OXYGEN
     Route: 065
  5. PROPOFOL. [Concomitant]
     Active Substance: PROPOFOL
     Indication: MAINTENANCE OF ANAESTHESIA
     Dosage: 200 MG
     Route: 065
  6. PANTOPRAZOLE [Concomitant]
     Active Substance: PANTOPRAZOLE SODIUM
     Dosage: 40 MG
     Route: 042
  7. ETOMIDATE. [Concomitant]
     Active Substance: ETOMIDATE
     Indication: INDUCTION OF ANAESTHESIA
     Dosage: 20MG
     Route: 065
  8. SEVOFLURANE. [Concomitant]
     Active Substance: SEVOFLURANE
     Indication: MAINTENANCE OF ANAESTHESIA
     Route: 065
  9. ATROPINE [Concomitant]
     Active Substance: ATROPINE
     Dosage: 0.5 MG
     Route: 065
  10. CLINDAMYCIN [Suspect]
     Active Substance: CLINDAMYCIN\CLINDAMYCIN PHOSPHATE
     Indication: PRODUCT USED FOR UNKNOWN INDICATION
     Dosage: 1.2 G IN 250ML 0.9% SODIUM CHLORIDE SOLUTION FOR ABOUT 30 MINUTES
     Route: 041
  11. CISATRACURIUM BESILATE [Concomitant]
     Active Substance: CISATRACURIUM BESYLATE
     Indication: MAINTENANCE OF ANAESTHESIA
     Dosage: 8 MG
     Route: 042
  12. TRAMADOL [Concomitant]
     Active Substance: TRAMADOL
     Indication: POSTOPERATIVE ANALGESIA
     Dosage: 500MG IN A 100 ML SOLUTION IN 24 HOURS AT A RATE OF 2ML/H
     Route: 041
  13. FENTANYL. [Interacting]
     Active Substance: FENTANYL
     Indication: POSTOPERATIVE ANALGESIA
     Dosage: 300 MICROG IN A 100 ML SOLUTION IN 24 HOURS AT A RATE OF 2ML/H
     Route: 041
  14. FENTANYL. [Interacting]
     Active Substance: FENTANYL
     Dosage: 150 MICROG
     Route: 065
  15. NEOSTIGMINE [Concomitant]
     Active Substance: NEOSTIGMINE
     Dosage: 1MG
     Route: 065
  16. CEFOTIAM [Concomitant]
     Active Substance: CEFOTIAM
     Dosage: 2G
     Route: 042

REACTIONS (3)
  - Respiratory depression [Fatal]
  - Drug interaction [Fatal]
  - Cardiac arrest [Fatal]
